FAERS Safety Report 23942323 (Version 1)
Quarter: 2024Q2

REPORT INFORMATION
  Report Type: Spontaneous
  Country: ZA (occurrence: None)
  Receive Date: 20240605
  Receipt Date: 20240605
  Transmission Date: 20240716
  Serious: Yes (Hospitalization)
  Sender: FDA-Public Use
  Company Number: 2024A126631

PATIENT
  Age: 82 Year
  Sex: Female

DRUGS (4)
  1. BUDESONIDE\FORMOTEROL [Suspect]
     Active Substance: BUDESONIDE\FORMOTEROL
     Dosage: 120 DOSE UNKNOWN UNKNOWN
     Route: 055
  2. GLICLAZIDE [Concomitant]
     Active Substance: GLICLAZIDE
     Indication: Hypertension
     Dosage: 60.0MG UNKNOWN
     Route: 048
  3. DOXAZOSIN MESYLATE [Concomitant]
     Active Substance: DOXAZOSIN MESYLATE
     Indication: Hypertension
     Dosage: 4.0MG UNKNOWN
     Route: 048
  4. OMEPRAZOLE [Concomitant]
     Active Substance: DONEPEZIL HYDROCHLORIDE\OMEPRAZOLE\OMEPRAZOLE MAGNESIUM
     Indication: Ulcer
     Dosage: 20.0MG UNKNOWN
     Route: 048

REACTIONS (3)
  - Chest pain [Unknown]
  - Hernia [Unknown]
  - Asthma [Unknown]
